FAERS Safety Report 5612261-1 (Version None)
Quarter: 2008Q1

REPORT INFORMATION
  Report Type: 
  Country: None (occurrence: None)
  Receive Date: 20080204
  Receipt Date: 20071210
  Transmission Date: 20080703
  Serious: Yes (Other)
  Sender: FDA-Public Use
  Company Number: US-PURDUE-USA_2007_0030822

PATIENT
  Sex: Female

DRUGS (1)
  1. OXYCONTIN [Suspect]
     Indication: PAIN
     Dosage: 10 MG, DAILY
     Dates: start: 19981216, end: 19990201

REACTIONS (12)
  - ACTIVITIES OF DAILY LIVING IMPAIRED [None]
  - BLADDER DISORDER [None]
  - CONTUSION [None]
  - DELIRIUM TREMENS [None]
  - DELUSION [None]
  - DEPRESSION [None]
  - DRUG DEPENDENCE [None]
  - FALL [None]
  - INSOMNIA [None]
  - MANIA [None]
  - PERSONALITY CHANGE [None]
  - THERMAL BURN [None]
